FAERS Safety Report 4502023-0 (Version None)
Quarter: 2004Q4

REPORT INFORMATION
  Report Type: 
  Country: None (occurrence: None)
  Receive Date: 20041116
  Receipt Date: 20040402
  Transmission Date: 20050328
  Serious: Yes (Hospitalization, Other)
  Sender: FDA-Public Use
  Company Number: BR-NOVOPROD-236428

PATIENT
  Age: 73 Year
  Sex: Male
  Weight: 96 kg

DRUGS (5)
  1. NOVOLIN N [Suspect]
     Indication: DIABETES MELLITUS
     Dosage: 15 IU, SINGLE
     Dates: start: 20040401, end: 20040401
  2. CHLORTHALIDONE [Concomitant]
     Dosage: 25 MG, QD
  3. PURAN T4 [Concomitant]
     Dosage: 1 TAB, QD
  4. METHYLDOPA [Concomitant]
     Dosage: 500 MG, EVERY 12 HOURS
  5. METFORMIN [Concomitant]
     Dosage: 850 MG, QD

REACTIONS (3)
  - ASTHENIA [None]
  - COLD SWEAT [None]
  - CONFUSIONAL STATE [None]
